FAERS Safety Report 9266585 (Version 2)
Quarter: 2013Q2

REPORT INFORMATION
  Report Type: Spontaneous
  Country: JP (occurrence: JP)
  Receive Date: 20130502
  Receipt Date: 20130520
  Transmission Date: 20140414
  Serious: Yes (Other)
  Sender: FDA-Public Use
  Company Number: PHHY2013JP037806

PATIENT
  Age: 61 Year
  Sex: Male

DRUGS (4)
  1. CO-DIOVAN [Suspect]
     Indication: HYPERTENSION
     Dosage: 1 DF, DAILY
     Route: 048
     Dates: start: 20130123, end: 20130408
  2. CELECOX [Concomitant]
     Indication: ARTHRITIS
     Dosage: 2 TABLETS OF 100 MG, DAILY
     Route: 048
     Dates: start: 20121126, end: 20130325
  3. DECADRON                                /CAN/ [Concomitant]
     Dosage: 3 DF, DAILY
  4. DECADRON                                /CAN/ [Concomitant]
     Dosage: 2 DF, DAILY

REACTIONS (4)
  - Solar dermatitis [Recovered/Resolved]
  - Erythema [Recovered/Resolved]
  - Pruritus [Recovered/Resolved]
  - Skin erosion [Recovered/Resolved]
